FAERS Safety Report 4504088-9 (Version None)
Quarter: 2004Q4

REPORT INFORMATION
  Report Type: 
  Country: None (occurrence: None)
  Receive Date: 20041118
  Receipt Date: 20041109
  Transmission Date: 20050328
  Serious: Yes (Hospitalization)
  Sender: FDA-Public Use
  Company Number: US-JNJFOC-20040809308

PATIENT
  Sex: Female
  Weight: 84.37 kg

DRUGS (8)
  1. REMICADE [Suspect]
     Indication: RHEUMATOID ARTHRITIS
     Route: 042
  2. MAXZIDE [Concomitant]
  3. MAXZIDE [Concomitant]
     Dosage: 75/50 TABS
  4. METROPOLOL [Concomitant]
  5. COZAAR [Concomitant]
  6. POTASSIUM [Concomitant]
  7. FOLIC ACID [Concomitant]
  8. METHOTREXATE [Concomitant]

REACTIONS (1)
  - POLYP [None]
